FAERS Safety Report 19854831 (Version 1)
Quarter: 2021Q3

REPORT INFORMATION
  Report Type: Spontaneous
  Country: US (occurrence: US)
  Receive Date: 20210917
  Receipt Date: 20210917
  Transmission Date: 20211014
  Serious: Yes (Life-Threatening, Hospitalization)
  Sender: FDA-Public Use
  Company Number: None

PATIENT
  Age: 63 Year
  Sex: Female
  Weight: 77 kg

DRUGS (6)
  1. VALSARTAN TABLETS [Suspect]
     Active Substance: VALSARTAN
     Indication: ACUTE MYOCARDIAL INFARCTION
     Route: 048
     Dates: start: 20200116, end: 20210707
  2. BABY ASPIRIN [Concomitant]
     Active Substance: ASPIRIN
     Dates: start: 20190921
  3. VALSARTAN TABLETS [Suspect]
     Active Substance: VALSARTAN
     Indication: HYPERTENSION
     Route: 048
     Dates: start: 20200116, end: 20210707
  4. CLONIDINE. [Concomitant]
     Active Substance: CLONIDINE
     Dates: start: 20050930
  5. REPATHA [Concomitant]
     Active Substance: EVOLOCUMAB
     Dates: start: 20190921
  6. SERTRALINE [Concomitant]
     Active Substance: SERTRALINE HYDROCHLORIDE
     Dates: start: 20080808

REACTIONS (12)
  - Heart rate irregular [None]
  - Malaise [None]
  - Cold sweat [None]
  - Chest pain [None]
  - Dyspnoea [None]
  - Confusional state [None]
  - Dizziness [None]
  - Pancreatitis [None]
  - Decreased appetite [None]
  - Nervousness [None]
  - Fatigue [None]
  - Asthenia [None]

NARRATIVE: CASE EVENT DATE: 20210627
